FAERS Safety Report 12712412 (Version 1)
Quarter: 2016Q3

REPORT INFORMATION
  Report Type: Report from Study
  Country: AU (occurrence: AU)
  Receive Date: 20160902
  Receipt Date: 20160902
  Transmission Date: 20161109
  Serious: Yes (Hospitalization, Other)
  Sender: FDA-Public Use
  Company Number: AU-ABBVIE-16K-008-1674917-00

PATIENT
  Age: 75 Year
  Sex: Female

DRUGS (2)
  1. SINEMET [Concomitant]
     Active Substance: CARBIDOPA\LEVODOPA
     Indication: PARKINSON^S DISEASE
     Dosage: 200/50 MG
     Route: 048
     Dates: start: 20160705
  2. DUODOPA [Suspect]
     Active Substance: CARBIDOPA\LEVODOPA
     Indication: PARKINSON^S DISEASE
     Dosage: 16 HR INFUSION
     Route: 050
     Dates: start: 20160705, end: 20160719

REACTIONS (11)
  - Thrombophlebitis [Unknown]
  - Delirium [Unknown]
  - Delusional disorder, unspecified type [Recovered/Resolved]
  - Abdominal pain upper [Recovered/Resolved]
  - Agitation [Unknown]
  - Infection [Recovering/Resolving]
  - Pneumoperitoneum [Recovered/Resolved]
  - Malaise [Recovered/Resolved]
  - Confusional state [Recovered/Resolved]
  - Delusion [Unknown]
  - Constipation [Recovering/Resolving]

NARRATIVE: CASE EVENT DATE: 201607
